FAERS Safety Report 18677750 (Version 7)
Quarter: 2021Q1

REPORT INFORMATION
  Report Type: Report from Study
  Country: US (occurrence: US)
  Receive Date: 20201229
  Receipt Date: 20210329
  Transmission Date: 20210419
  Serious: No
  Sender: FDA-Public Use
  Company Number: NVSC2020US344280

PATIENT
  Age: 51 Year
  Sex: Female

DRUGS (5)
  1. COSENTYX [Suspect]
     Active Substance: SECUKINUMAB
     Indication: PSORIATIC ARTHROPATHY
     Dosage: 150 MG, QW (150 MG, Q5W AND THEN Q4W)
     Route: 058
     Dates: start: 20201115
  2. COSENTYX [Suspect]
     Active Substance: SECUKINUMAB
     Dosage: 300 MG
     Route: 065
  3. COSENTYX [Suspect]
     Active Substance: SECUKINUMAB
     Dosage: 300 MG, QW (FOR 5 WEEKS0
     Route: 065
     Dates: start: 20201225
  4. COSENTYX [Suspect]
     Active Substance: SECUKINUMAB
     Indication: SJOGREN^S SYNDROME
     Dosage: 150 MG, QMO
     Route: 058
  5. COSENTYX [Suspect]
     Active Substance: SECUKINUMAB
     Dosage: 300 MG, QMO
     Route: 058
     Dates: start: 20201225

REACTIONS (9)
  - Pain in extremity [Unknown]
  - Arthralgia [Unknown]
  - Product use in unapproved indication [Unknown]
  - Irritable bowel syndrome [Unknown]
  - Fatigue [Unknown]
  - Sensitive skin [Unknown]
  - Nausea [Unknown]
  - Psoriasis [Not Recovered/Not Resolved]
  - Onychalgia [Unknown]

NARRATIVE: CASE EVENT DATE: 20201206
